FAERS Safety Report 6924866-6 (Version None)
Quarter: 2010Q3

REPORT INFORMATION
  Report Type: 
  Country: None (occurrence: None)
  Receive Date: 20100816
  Receipt Date: 20100806
  Transmission Date: 20110219
  Serious: Yes (Hospitalization)
  Sender: FDA-Public Use
  Company Number: US-NOVOPROD-312722

PATIENT
  Age: 65 Year
  Sex: Female

DRUGS (1)
  1. VAGIFEM [Suspect]
     Indication: MENOPAUSAL SYMPTOMS
     Dosage: ONCE A WEEK
     Route: 067
     Dates: start: 20050101, end: 20100731

REACTIONS (3)
  - ATRIAL FIBRILLATION [None]
  - BLOOD PRESSURE INCREASED [None]
  - HEART RATE INCREASED [None]
